FAERS Safety Report 23321689 (Version 2)
Quarter: 2024Q1

REPORT INFORMATION
  Report Type: Spontaneous
  Country: US (occurrence: US)
  Receive Date: 20231220
  Receipt Date: 20240103
  Transmission Date: 20240410
  Serious: Yes (Hospitalization)
  Sender: FDA-Public Use
  Company Number: US-MEDEXUS PHARMA, INC.-2023MED00532

PATIENT
  Age: 62 Year
  Sex: Female

DRUGS (3)
  1. RASUVO [Suspect]
     Active Substance: METHOTREXATE SODIUM
     Indication: Arthritis
     Dosage: 25 MG, 1X/WEEK ON THURSDAYS
     Route: 065
  2. RASUVO [Suspect]
     Active Substance: METHOTREXATE SODIUM
     Indication: Muscle disorder
  3. UNSPECIFIED INGREDIENT [Concomitant]
     Active Substance: UNSPECIFIED INGREDIENT

REACTIONS (2)
  - Cardiac function test [Unknown]
  - Off label use [Unknown]

NARRATIVE: CASE EVENT DATE: 20231201
